FAERS Safety Report 23477008 (Version 1)
Quarter: 2024Q1

REPORT INFORMATION
  Report Type: Report from Study
  Country: US (occurrence: US)
  Receive Date: 20240204
  Receipt Date: 20240204
  Transmission Date: 20240410
  Serious: No
  Sender: FDA-Public Use
  Company Number: US-EXELIXIS-CABO-23065112

PATIENT
  Sex: Male

DRUGS (1)
  1. CABOMETYX [Suspect]
     Active Substance: CABOZANTINIB S-MALATE
     Indication: Thyroid cancer
     Dosage: 20 MG, QD

REACTIONS (6)
  - Burning sensation [Unknown]
  - Skin laceration [Unknown]
  - Impaired healing [Unknown]
  - Skin ulcer [Unknown]
  - Abdominal pain upper [Unknown]
  - Gastrointestinal pain [Unknown]
